FAERS Safety Report 8828645 (Version 10)
Quarter: 2022Q4

REPORT INFORMATION
  Report Type: Report from Study
  Country: PL (occurrence: PL)
  Receive Date: 20121005
  Receipt Date: 20221021
  Transmission Date: 20230113
  Serious: Yes (Life-Threatening, Hospitalization, Other)
  Sender: FDA-Public Use
  Company Number: PL-SHIRE-ALL1-2012-04686

PATIENT
  Age: 13 Year
  Sex: Male
  Weight: 36 kg

DRUGS (4)
  1. IDURSULFASE [Suspect]
     Active Substance: IDURSULFASE
     Indication: Mucopolysaccharidosis II
     Dosage: UNK
     Route: 042
     Dates: start: 20090915
  2. IDURSULFASE [Suspect]
     Active Substance: IDURSULFASE
     Dosage: 18 MILLIGRAM, 1/WEEK
     Route: 042
     Dates: start: 20091002, end: 20120928
  3. IDURSULFASE [Suspect]
     Active Substance: IDURSULFASE
     Dosage: UNK, 1/WEEK
     Route: 042
     Dates: start: 20100105, end: 20121105
  4. ACETAMINOPHEN [Concomitant]
     Active Substance: ACETAMINOPHEN
     Dosage: 15 MILLILITER
     Route: 048
     Dates: start: 20120928

REACTIONS (12)
  - Infusion related reaction [Recovering/Resolving]
  - Bronchitis [Recovering/Resolving]
  - Anaphylactic reaction [Recovered/Resolved]
  - Chills [Recovered/Resolved]
  - Anxiety [Recovered/Resolved]
  - Cough [Recovered/Resolved]
  - Poor quality sleep [Recovered/Resolved]
  - Upper respiratory tract infection [Recovered/Resolved]
  - Oxygen saturation decreased [Recovered/Resolved]
  - Scrotal swelling [Recovered/Resolved]
  - Pyrexia [Recovered/Resolved]
  - Urticaria [Recovered/Resolved]

NARRATIVE: CASE EVENT DATE: 20091023
